FAERS Safety Report 9386136 (Version 1)
Quarter: 2013Q3

REPORT INFORMATION
  Report Type: Spontaneous
  Country: US (occurrence: US)
  Receive Date: 20130707
  Receipt Date: 20130707
  Transmission Date: 20140515
  Serious: No
  Sender: FDA-Public Use
  Company Number: US-ALLERGAN-1305368US

PATIENT
  Sex: Female

DRUGS (1)
  1. LUMIGAN? 0.01% [Suspect]
     Indication: PRODUCT USED FOR UNKNOWN INDICATION
     Route: 047

REACTIONS (4)
  - Eye swelling [Unknown]
  - Intraocular pressure increased [Unknown]
  - Headache [Unknown]
  - Eye pain [Unknown]
